FAERS Safety Report 21860524 (Version 2)
Quarter: 2023Q1

REPORT INFORMATION
  Report Type: Spontaneous
  Country: FR (occurrence: FR)
  Receive Date: 20230113
  Receipt Date: 20230131
  Transmission Date: 20230418
  Serious: Yes (Other)
  Sender: FDA-Public Use
  Company Number: FR-ORGANON-O2301FRA000509

PATIENT
  Sex: Female

DRUGS (3)
  1. LIPTRUZET [Suspect]
     Active Substance: ATORVASTATIN CALCIUM\EZETIMIBE
     Indication: Low density lipoprotein abnormal
     Dosage: ONE TABLET PER DAY
     Route: 048
     Dates: start: 202111
  2. LERCANIDIPINE [Concomitant]
     Active Substance: LERCANIDIPINE
     Indication: Blood pressure management
     Dosage: UNK
  3. NEBIVOLOL [Concomitant]
     Active Substance: NEBIVOLOL
     Indication: Heart rate abnormal
     Dosage: UNK

REACTIONS (1)
  - Hypothyroidism [Recovered/Resolved]
